FAERS Safety Report 8837603 (Version 2)
Quarter: 2012Q4

REPORT INFORMATION
  Report Type: Report from Study
  Country: ES (occurrence: ES)
  Receive Date: 20121012
  Receipt Date: 20121026
  Transmission Date: 20130627
  Serious: Yes (Hospitalization, Other)
  Sender: FDA-Public Use
  Company Number: ES-ABBOTT-12P-144-0990684-00

PATIENT
  Age: 57 None
  Sex: Male
  Weight: 115 kg

DRUGS (9)
  1. HUMIRA [Suspect]
     Indication: PSORIASIS
     Route: 058
     Dates: start: 20110325, end: 20110325
  2. HUMIRA [Suspect]
     Route: 058
     Dates: start: 20110401, end: 20110509
  3. HUMIRA [Suspect]
     Route: 058
     Dates: start: 20110509, end: 20111004
  4. HUMIRA [Suspect]
     Dosage: Stopped one month before surgery
     Route: 058
     Dates: start: 20111027, end: 201206
  5. METFORMIN [Concomitant]
     Indication: TYPE 2 DIABETES MELLITUS
  6. UNKNOWN TREATMENT [Concomitant]
     Indication: DYSLIPIDAEMIA
  7. ENALAPRIL [Concomitant]
     Indication: HYPERTENSION
  8. OMEPRAZOLE [Concomitant]
     Indication: PRODUCT USED FOR UNKNOWN INDICATION
  9. ENOXAPARIN [Concomitant]
     Indication: PRODUCT USED FOR UNKNOWN INDICATION

REACTIONS (32)
  - Pneumothorax [Unknown]
  - Septic shock [Recovered/Resolved]
  - Pleural effusion [Unknown]
  - Localised intraabdominal fluid collection [Recovered/Resolved]
  - Pyrexia [Recovered/Resolved]
  - Splenic infarction [Recovered/Resolved]
  - Carotid arteriosclerosis [Unknown]
  - Acute abdomen [Unknown]
  - Purulence [Unknown]
  - Localised intraabdominal fluid collection [Unknown]
  - Hypercapnia [Recovered/Resolved]
  - Hypertension [Recovering/Resolving]
  - Spleen disorder [Recovered/Resolved]
  - Pallor [Unknown]
  - Cold sweat [Unknown]
  - Cyanosis [Unknown]
  - Cardiac murmur [Unknown]
  - Abdominal pain upper [Recovering/Resolving]
  - Abdominal pain upper [Recovering/Resolving]
  - Somnolence [Unknown]
  - Oedema peripheral [Unknown]
  - Respiratory acidosis [Unknown]
  - Lymphadenopathy [Unknown]
  - Atelectasis [Unknown]
  - Nodule [Unknown]
  - Infection [Unknown]
  - Pyrexia [Unknown]
  - Peptostreptococcus infection [Unknown]
  - Oxygen saturation decreased [Unknown]
  - C-reactive protein abnormal [Recovering/Resolving]
  - Leukocytosis [Recovering/Resolving]
  - Hyperadrenalism [Unknown]
